FAERS Safety Report 7149462-X (Version None)
Quarter: 2010Q4

REPORT INFORMATION
  Report Type: 
  Country: None (occurrence: None)
  Receive Date: 20101209
  Receipt Date: 20101116
  Transmission Date: 20110411
  Serious: No
  Sender: FDA-Public Use
  Company Number: US-PFIZER INC-2010153183

PATIENT
  Age: 96 Year
  Sex: Female
  Weight: 52.608 kg

DRUGS (5)
  1. ALAVERT [Suspect]
     Indication: HYPERSENSITIVITY
     Dosage: 1 DF, 1X/DAY
     Route: 048
     Dates: start: 20101114, end: 20101115
  2. NORVASC [Concomitant]
     Indication: HYPERTENSION
  3. PROTONIX [Concomitant]
     Indication: GASTRIC DISORDER
  4. PRAVACHOL [Concomitant]
  5. ASPIRIN [Concomitant]

REACTIONS (2)
  - DIARRHOEA [None]
  - POLLAKIURIA [None]
